FAERS Safety Report 10239366 (Version 1)
Quarter: 2014Q2

REPORT INFORMATION
  Report Type: Report from Study
  Country: US (occurrence: US)
  Receive Date: 20140616
  Receipt Date: 20140616
  Transmission Date: 20141212
  Serious: No
  Sender: FDA-Public Use
  Company Number: US-ABBVIE-14P-163-1230727-00

PATIENT
  Age: 45 Year
  Sex: Female

DRUGS (2)
  1. LUPANETA PACK [Suspect]
     Indication: UTERINE LEIOMYOMA
     Dates: start: 20140322
  2. LUPANETA PACK [Suspect]
     Indication: UTERINE LEIOMYOMA
     Dates: start: 20140322

REACTIONS (1)
  - Menstrual disorder [Not Recovered/Not Resolved]
